FAERS Safety Report 5575665-1 (Version None)
Quarter: 2007Q4

REPORT INFORMATION
  Report Type: 
  Country: None (occurrence: None)
  Receive Date: 20071221
  Receipt Date: 20071210
  Transmission Date: 20080405
  Serious: Yes (Death, Hospitalization)
  Sender: FDA-Public Use
  Company Number: MEDI-0006230

PATIENT
  Age: 5 Month
  Sex: Male

DRUGS (7)
  1. SYNAGIS [Suspect]
     Indication: ANTIVIRAL PROPHYLAXIS
     Dosage: 100 MG, INTRAMUSCULAR
     Route: 030
     Dates: start: 20071016, end: 20071116
  2. SYNAGIS [Suspect]
     Indication: ANTIVIRAL PROPHYLAXIS
     Dosage: 100 MG, INTRAMUSCULAR
     Route: 030
     Dates: start: 20071016
  3. ASPIRIN [Concomitant]
  4. SPIRONOLACTONE [Concomitant]
  5. CAPTOPRIL [Concomitant]
  6. DIFETOIN (PHENYTOIN) [Concomitant]
  7. DALTEPARIN SODIUM [Concomitant]

REACTIONS (9)
  - ATRIOVENTRICULAR BLOCK SECOND DEGREE [None]
  - CARDIOGENIC SHOCK [None]
  - GENERAL PHYSICAL HEALTH DETERIORATION [None]
  - HEPATOMEGALY [None]
  - METABOLIC ACIDOSIS [None]
  - MYOCARDIAL INFARCTION [None]
  - RIGHT VENTRICULAR DYSFUNCTION [None]
  - TACHYCARDIA [None]
  - TRICUSPID VALVE INCOMPETENCE [None]
